FAERS Safety Report 10174686 (Version 1)
Quarter: 2014Q2

REPORT INFORMATION
  Report Type: Spontaneous
  Country: US (occurrence: None)
  Receive Date: 20140416
  Receipt Date: 20140416
  Transmission Date: 20141212
  Serious: No
  Sender: FDA-Public Use
  Company Number: 163-POMAL-14013993

PATIENT
  Age: 68 Year
  Sex: Female
  Weight: 49.9 kg

DRUGS (7)
  1. POMALYST [Suspect]
     Indication: PLASMA CELL MYELOMA
     Dosage: 1 MG, 1 IN 1 D, PO
     Route: 048
     Dates: start: 201303, end: 2013
  2. LEVOTHYROXINE [Concomitant]
  3. VIGAMOX [Concomitant]
  4. DUREZOL [Concomitant]
  5. WARFARIN [Concomitant]
  6. DEXAMETHASONE (DEXAMETHASONE) (UNKNOWN) [Concomitant]
  7. POTASSIUM BITARTRATE [Concomitant]

REACTIONS (1)
  - Adverse drug reaction [None]
